FAERS Safety Report 24984173 (Version 1)
Quarter: 2025Q1

REPORT INFORMATION
  Report Type: Spontaneous
  Country: US (occurrence: US)
  Receive Date: 20250219
  Receipt Date: 20250219
  Transmission Date: 20250408
  Serious: No
  Sender: JOHNSON AND JOHNSON
  Company Number: US-JNJFOC-20250207859

PATIENT
  Sex: Female

DRUGS (4)
  1. TREMFYA [Suspect]
     Active Substance: GUSELKUMAB
     Indication: Psoriasis
     Route: 065
  2. TREMFYA [Suspect]
     Active Substance: GUSELKUMAB
  3. TREMFYA [Suspect]
     Active Substance: GUSELKUMAB
  4. TREMFYA [Suspect]
     Active Substance: GUSELKUMAB

REACTIONS (10)
  - Inappropriate schedule of product administration [Unknown]
  - Product dose omission issue [Unknown]
  - Intervertebral disc disorder [Unknown]
  - Feeling abnormal [Unknown]
  - Cough [Unknown]
  - Influenza [Unknown]
  - Chest pain [Unknown]
  - Influenza like illness [Unknown]
  - Electrocardiogram ambulatory normal [Unknown]
  - Stress [Unknown]
